FAERS Safety Report 13721071 (Version 1)
Quarter: 2017Q3

REPORT INFORMATION
  Report Type: Spontaneous
  Country: JP (occurrence: JP)
  Receive Date: 20170706
  Receipt Date: 20170706
  Transmission Date: 20171127
  Serious: Yes (Hospitalization)
  Sender: FDA-Public Use
  Company Number: JP-TEVA-2017-JP-002038J

PATIENT
  Age: 8 Decade
  Sex: Male

DRUGS (3)
  1. GASTER [Concomitant]
     Active Substance: FAMOTIDINE
     Route: 048
     Dates: end: 20170530
  2. GLUCOBAY [Concomitant]
     Active Substance: ACARBOSE
     Dosage: 3 DOSAGE FORMS DAILY;
     Route: 048
     Dates: end: 20170530
  3. ACTOS [Suspect]
     Active Substance: PIOGLITAZONE HYDROCHLORIDE
     Indication: DIABETES MELLITUS
     Dosage: 30 MILLIGRAM DAILY;
     Route: 048
     Dates: end: 20170530

REACTIONS (1)
  - Hyperkalaemia [Recovering/Resolving]

NARRATIVE: CASE EVENT DATE: 20170530
